FAERS Safety Report 18374797 (Version 1)
Quarter: 2020Q4

REPORT INFORMATION
  Report Type: Spontaneous
  Country: AU (occurrence: AU)
  Receive Date: 20201012
  Receipt Date: 20201012
  Transmission Date: 20210114
  Serious: Yes (Other)
  Sender: FDA-Public Use
  Company Number: AU-PURDUE-USA-2020-0170106

PATIENT
  Age: 67 Year
  Sex: Male

DRUGS (2)
  1. MORPHINE SULFATE. [Suspect]
     Active Substance: MORPHINE SULFATE
     Indication: PRODUCT USED FOR UNKNOWN INDICATION
     Dosage: UNK
     Route: 065
  2. OXYCODONE HYDROCHLORIDE. [Suspect]
     Active Substance: OXYCODONE HYDROCHLORIDE
     Indication: PRODUCT USED FOR UNKNOWN INDICATION
     Dosage: UNK
     Route: 065

REACTIONS (14)
  - Hypoaesthesia [Unknown]
  - Paraesthesia [Unknown]
  - Movement disorder [Unknown]
  - Pain [Unknown]
  - Feeling abnormal [Unknown]
  - Suicide attempt [Unknown]
  - Incoherent [Unknown]
  - Tremor [Unknown]
  - Drug withdrawal syndrome [Unknown]
  - Chills [Unknown]
  - Nervousness [Unknown]
  - Pneumonia [Unknown]
  - Depressed mood [Unknown]
  - Muscle spasms [Unknown]
